FAERS Safety Report 16489402 (Version 1)
Quarter: 2019Q2

REPORT INFORMATION
  Report Type: Spontaneous
  Country: US (occurrence: US)
  Receive Date: 20190628
  Receipt Date: 20190628
  Transmission Date: 20190711
  Serious: No
  Sender: FDA-Public Use
  Company Number: US-PFIZER INC-2019274278

PATIENT
  Sex: Female

DRUGS (2)
  1. QUETIAPINE. [Interacting]
     Active Substance: QUETIAPINE
     Dosage: UNK
  2. XELJANZ [Suspect]
     Active Substance: TOFACITINIB CITRATE
     Indication: RHEUMATOID ARTHRITIS
     Dosage: UNK

REACTIONS (4)
  - Condition aggravated [Unknown]
  - Anger [Unknown]
  - Drug interaction [Unknown]
  - Restlessness [Unknown]
